FAERS Safety Report 4509542-1 (Version None)
Quarter: 2004Q4

REPORT INFORMATION
  Report Type: 
  Country: None (occurrence: None)
  Receive Date: 20041119
  Receipt Date: 20041108
  Transmission Date: 20050328
  Serious: Yes (Other)
  Sender: FDA-Public Use
  Company Number: HQWYE333210NOV04

PATIENT
  Age: 46 Year
  Sex: Female
  Weight: 52.21 kg

DRUGS (5)
  1. PREMARIN [Suspect]
     Indication: MENOPAUSAL SYMPTOMS
     Dosage: 0.625MG DAILY, ORAL
     Route: 048
     Dates: start: 19950101
  2. METFORMIN HCL [Concomitant]
  3. BEXTRA [Concomitant]
  4. ACIPHEX [Concomitant]
  5. NEXIUM [Concomitant]

REACTIONS (5)
  - DISORIENTATION [None]
  - DIZZINESS [None]
  - ELECTROLYTE IMBALANCE [None]
  - IMPAIRED WORK ABILITY [None]
  - NAUSEA [None]
